FAERS Safety Report 9402024 (Version 1)
Quarter: 2013Q3

REPORT INFORMATION
  Report Type: Spontaneous
  Country: US (occurrence: US)
  Receive Date: 20130716
  Receipt Date: 20130716
  Transmission Date: 20140515
  Serious: Yes (Other)
  Sender: FDA-Public Use
  Company Number: PHEH2013US014599

PATIENT
  Sex: Female

DRUGS (5)
  1. TASIGNA [Suspect]
  2. TRIAMTERENE/HCTZ [Concomitant]
  3. SYNTHROID [Concomitant]
  4. VITAMIN D2 [Concomitant]
  5. SPRYCEL//DASATINIB [Concomitant]
     Dosage: 100 MG, UNK

REACTIONS (2)
  - Ligament rupture [Unknown]
  - Asthenia [Unknown]
